FAERS Safety Report 19308348 (Version 2)
Quarter: 2021Q2

REPORT INFORMATION
  Report Type: Report from Study
  Country: US (occurrence: US)
  Receive Date: 20210525
  Receipt Date: 20210616
  Transmission Date: 20210717
  Serious: Yes (Other)
  Sender: FDA-Public Use
  Company Number: US-SEATTLE GENETICS-2021SGN02767

PATIENT
  Sex: Female

DRUGS (1)
  1. TUCATINIB [Suspect]
     Active Substance: TUCATINIB
     Indication: BREAST CANCER FEMALE
     Dosage: UNK
     Dates: end: 20210606

REACTIONS (21)
  - Acne [Unknown]
  - Parosmia [Unknown]
  - Rectal haemorrhage [Unknown]
  - Unevaluable event [Unknown]
  - Gait disturbance [Unknown]
  - Asthenia [Unknown]
  - Blood pressure increased [Unknown]
  - Abdominal distension [Unknown]
  - Haemorrhoids [Unknown]
  - Hepatic enzyme increased [Unknown]
  - Brain neoplasm [Unknown]
  - Emotional distress [Unknown]
  - Decreased appetite [Unknown]
  - Gastric disorder [Unknown]
  - Hypokinesia [Unknown]
  - Fatigue [Unknown]
  - Neuropathy peripheral [Unknown]
  - Gingival bleeding [Unknown]
  - Feeling hot [Unknown]
  - Diarrhoea [Unknown]
  - Nausea [Unknown]
